FAERS Safety Report 4303881-5 (Version None)
Quarter: 2004Q1

REPORT INFORMATION
  Report Type: 
  Country: None (occurrence: None)
  Receive Date: 20040225
  Receipt Date: 20040213
  Transmission Date: 20041129
  Serious: Yes (Life-Threatening, Hospitalization)
  Sender: FDA-Public Use
  Company Number: GB-GLAXOSMITHKLINE-B0324054A

PATIENT
  Age: 19 Year
  Sex: Female
  Weight: 76.2 kg

DRUGS (12)
  1. SUCCINYLCHOLINE CHLORIDE [Suspect]
     Route: 065
  2. ONDANSETRON HCL [Suspect]
     Route: 065
  3. CEFUROXIME SODIUM [Suspect]
     Route: 065
  4. THIOPENTONE [Suspect]
     Route: 065
  5. FENTANYL [Suspect]
     Route: 065
  6. MORPHINE [Suspect]
     Route: 065
  7. VERAPAMIL HCL [Suspect]
     Route: 065
  8. BUPIVACAINE [Suspect]
     Route: 065
  9. FLAGYL [Suspect]
     Route: 065
  10. EPHEDRINE [Suspect]
     Route: 065
  11. IODINE [Suspect]
  12. NO CONCURRENT MEDICATIONS [Concomitant]

REACTIONS (9)
  - ANAESTHETIC COMPLICATION [None]
  - BRONCHOSPASM [None]
  - HYPOTENSION [None]
  - PRURITUS [None]
  - RASH ERYTHEMATOUS [None]
  - RASH GENERALISED [None]
  - STRIDOR [None]
  - SWELLING FACE [None]
  - WHEEZING [None]
